FAERS Safety Report 12755001 (Version 3)
Quarter: 2016Q4

REPORT INFORMATION
  Report Type: Spontaneous
  Country: DE (occurrence: DE)
  Receive Date: 20160916
  Receipt Date: 20161104
  Transmission Date: 20170207
  Serious: Yes (Other)
  Sender: FDA-Public Use
  Company Number: DE-BRISTOL-MYERS SQUIBB COMPANY-BMS-2016-074598

PATIENT
  Age: 71 Year
  Sex: Male
  Weight: 85 kg

DRUGS (2)
  1. ELIQUIS [Suspect]
     Active Substance: APIXABAN
     Indication: DEEP VEIN THROMBOSIS
     Route: 065
  2. ELIQUIS [Suspect]
     Active Substance: APIXABAN
     Indication: PULMONARY EMBOLISM
     Dosage: 10 MG, DAILY
     Route: 065
     Dates: start: 20150512

REACTIONS (2)
  - Pulmonary embolism [Unknown]
  - Prostate cancer [Unknown]

NARRATIVE: CASE EVENT DATE: 201609
